FAERS Safety Report 5309295-3 (Version None)
Quarter: 2007Q2

REPORT INFORMATION
  Report Type: 
  Country: None (occurrence: None)
  Receive Date: 20070427
  Receipt Date: 20070416
  Transmission Date: 20071010
  Serious: Yes (Other)
  Sender: FDA-Public Use
  Company Number: JP-ROCHE-489394

PATIENT
  Age: 11 Year
  Sex: Male
  Weight: 26 kg

DRUGS (3)
  1. TAMIFLU [Suspect]
     Dosage: REPORTED FORM: DRY SYRUP.
     Route: 048
     Dates: start: 20070319, end: 20070319
  2. MEDICON [Concomitant]
     Route: 048
     Dates: start: 20070319, end: 20070324
  3. MUCOSOLVAN [Concomitant]
     Route: 048
     Dates: start: 20070319, end: 20070324

REACTIONS (1)
  - ABNORMAL BEHAVIOUR [None]
